FAERS Safety Report 10264735 (Version 1)
Quarter: 2014Q2

REPORT INFORMATION
  Report Type: Spontaneous
  Country: NL (occurrence: NL)
  Receive Date: 20140627
  Receipt Date: 20140627
  Transmission Date: 20141212
  Serious: Yes (Death)
  Sender: FDA-Public Use
  Company Number: NL-AMGEN-NLDSP2014047446

PATIENT
  Age: 91 Year
  Sex: Male

DRUGS (1)
  1. ARANESP [Suspect]
     Indication: MYELODYSPLASTIC SYNDROME
     Dosage: 0.3 ML,(500MCG/ML) QWK
     Route: 058
     Dates: start: 20130516, end: 20140623

REACTIONS (1)
  - Death [Fatal]
